FAERS Safety Report 5740460-7 (Version None)
Quarter: 2008Q2

REPORT INFORMATION
  Report Type: 
  Country: None (occurrence: None)
  Receive Date: 20080516
  Receipt Date: 20080515
  Transmission Date: 20081010
  Serious: Yes (Hospitalization)
  Sender: FDA-Public Use
  Company Number: IT-WYE-G01524408

PATIENT
  Sex: Male

DRUGS (2)
  1. TAZOCIN [Suspect]
     Indication: DIABETIC FOOT INFECTION
     Route: 042
     Dates: start: 20080323, end: 20080425
  2. TARGOCID [Suspect]
     Indication: DIABETIC FOOT INFECTION
     Route: 042
     Dates: start: 20080406, end: 20080425

REACTIONS (1)
  - TOXIC SKIN ERUPTION [None]
